FAERS Safety Report 15081739 (Version 1)
Quarter: 2018Q2

REPORT INFORMATION
  Report Type: Spontaneous
  Country: US (occurrence: US)
  Receive Date: 20180628
  Receipt Date: 20180628
  Transmission Date: 20180711
  Serious: No
  Sender: FDA-Public Use
  Company Number: US-PFIZER INC-2018256884

PATIENT
  Age: 81 Year
  Sex: Male

DRUGS (1)
  1. SUTENT [Suspect]
     Active Substance: SUNITINIB MALATE
     Dosage: 50 MG, CYCLIC (1 CAPSULE DAILY FOR 4 WKS, THEN 2 WKS OFF)
     Dates: start: 20180617

REACTIONS (2)
  - Peripheral swelling [Unknown]
  - Limb discomfort [Unknown]

NARRATIVE: CASE EVENT DATE: 201806
